FAERS Safety Report 6250673-6 (Version None)
Quarter: 2009Q2

REPORT INFORMATION
  Report Type: 
  Country: None (occurrence: None)
  Receive Date: 20090630
  Receipt Date: 20090616
  Transmission Date: 20091009
  Serious: Yes (Hospitalization)
  Sender: FDA-Public Use
  Company Number: JP-ROCHE-636296

PATIENT
  Sex: Female
  Weight: 44 kg

DRUGS (4)
  1. PEGASYS [Suspect]
     Indication: HEPATITIS C
     Route: 058
     Dates: start: 20090508, end: 20090522
  2. PEG-INTRON [Suspect]
     Indication: HEPATITIS C
     Route: 058
     Dates: start: 20090206, end: 20090501
  3. RIBAVIRIN [Suspect]
     Indication: HEPATITIS C
     Route: 048
     Dates: start: 20090206, end: 20090501
  4. CELESTAMINE [Concomitant]
     Route: 048
     Dates: start: 20090417, end: 20090521

REACTIONS (1)
  - VOGT-KOYANAGI-HARADA SYNDROME [None]
